FAERS Safety Report 18390878 (Version 1)
Quarter: 2020Q4

REPORT INFORMATION
  Report Type: Spontaneous
  Country: PL (occurrence: PL)
  Receive Date: 20201016
  Receipt Date: 20201016
  Transmission Date: 20210114
  Serious: Yes (Hospitalization)
  Sender: FDA-Public Use
  Company Number: PL-ACCORD-205206

PATIENT
  Age: 71 Year
  Sex: Female
  Weight: 77 kg

DRUGS (6)
  1. ATROPINE. [Concomitant]
     Active Substance: ATROPINE
     Dosage: DOSE: 1/2 OF AMPOULE
     Route: 042
  2. AKYNZEO [Concomitant]
     Active Substance: NETUPITANT\PALONOSETRON HYDROCHLORIDE
     Dosage: DOSE: 1 TABLET
     Route: 048
  3. CONTROLOC [Concomitant]
     Active Substance: PANTOPRAZOLE SODIUM
     Dosage: DOSE: 1 AMPOULE
     Route: 042
  4. CAMPTO [Concomitant]
     Active Substance: IRINOTECAN
     Route: 042
  5. OXALIPLATIN. [Suspect]
     Active Substance: OXALIPLATIN
     Indication: PANCREATIC CARCINOMA
     Dosage: DOSE: 154.7
     Route: 042
     Dates: start: 20200129, end: 20200129
  6. DEXAVEN [Concomitant]
     Active Substance: DEXAMETHASONE
     Route: 042

REACTIONS (5)
  - Feeling hot [Recovered/Resolved]
  - Dyspnoea [Recovered/Resolved]
  - Off label use [Unknown]
  - Rhinorrhoea [Recovered/Resolved]
  - Chills [Recovered/Resolved]

NARRATIVE: CASE EVENT DATE: 20200129
